FAERS Safety Report 16895451 (Version 1)
Quarter: 2019Q4

REPORT INFORMATION
  Report Type: Spontaneous
  Country: US (occurrence: US)
  Receive Date: 20191008
  Receipt Date: 20191008
  Transmission Date: 20200122
  Serious: Yes (Hospitalization, Other)
  Sender: FDA-Public Use
  Company Number: US-PFIZER INC-2019425847

PATIENT
  Age: 22 Year
  Sex: Female

DRUGS (2)
  1. CHLOROPROCAINE HYDROCHLORIDE. [Suspect]
     Active Substance: CHLOROPROCAINE HYDROCHLORIDE
     Indication: ANALGESIC THERAPY
  2. CHLOROPROCAINE HYDROCHLORIDE. [Suspect]
     Active Substance: CHLOROPROCAINE HYDROCHLORIDE
     Indication: LOCAL ANAESTHESIA
     Dosage: 5 ML, UNK (TWO 5 ML INCREMENTS)

REACTIONS (3)
  - Blood pressure decreased [Recovered/Resolved]
  - Bradycardia [Recovered/Resolved]
  - Dyspnoea [Recovered/Resolved]
